FAERS Safety Report 22347788 (Version 3)
Quarter: 2023Q2

REPORT INFORMATION
  Report Type: Spontaneous
  Country: DE (occurrence: DE)
  Receive Date: 20230522
  Receipt Date: 20230607
  Transmission Date: 20230722
  Serious: Yes (Other)
  Sender: FDA-Public Use
  Company Number: DE-BAXTER-2023BAX021678

PATIENT

DRUGS (33)
  1. BORTEZOMIB [Suspect]
     Active Substance: BORTEZOMIB
     Indication: Plasma cell myeloma refractory
     Dosage: UNK (FOURTH LINE TREATMENT)
     Route: 065
     Dates: start: 20230301, end: 20230330
  2. BORTEZOMIB [Suspect]
     Active Substance: BORTEZOMIB
     Dosage: UNK (FIRST LINE TREATMENT)
     Route: 065
     Dates: start: 20190901, end: 20200115
  3. BORTEZOMIB [Suspect]
     Active Substance: BORTEZOMIB
     Dosage: UNK (FIFTH LINE TREATMENT)
     Route: 065
     Dates: start: 20230411, end: 20230425
  4. DOXORUBICIN [Suspect]
     Active Substance: DOXORUBICIN
     Indication: Plasma cell myeloma refractory
     Dosage: UNK (FIFTH LINE TREATMENT)
     Route: 065
     Dates: start: 20230411, end: 20230425
  5. DOXORUBICIN [Suspect]
     Active Substance: DOXORUBICIN
     Dosage: UNK(MOST RECENT LINE TREATMENT)
     Route: 065
     Dates: start: 20210614, end: 20230421
  6. LENALIDOMIDE [Suspect]
     Active Substance: LENALIDOMIDE
     Indication: Plasma cell myeloma refractory
     Dosage: UNK(AS A PART OF FIRST LINE TREATMENT)
     Route: 065
     Dates: start: 20170612, end: 20171001
  7. LENALIDOMIDE [Suspect]
     Active Substance: LENALIDOMIDE
     Dosage: UNK(AS A PART OF FIFTH LINE TREATMENT)
     Route: 065
     Dates: start: 20201001, end: 20211002
  8. LENALIDOMIDE [Suspect]
     Active Substance: LENALIDOMIDE
     Indication: Plasma cell myeloma refractory
     Dosage: UNK (MAINTENANCE)
     Route: 065
     Dates: start: 20200805
  9. CYCLOPHOSPHAMIDE [Suspect]
     Active Substance: CYCLOPHOSPHAMIDE
     Indication: Plasma cell myeloma refractory
     Dosage: UNK (FIRST LINE TREATMENT)
     Route: 065
     Dates: start: 20190901, end: 20200115
  10. CYCLOPHOSPHAMIDE [Suspect]
     Active Substance: CYCLOPHOSPHAMIDE
     Dosage: UNK(MOST RECENT LINE TREATMENT)
     Route: 065
     Dates: start: 20220614, end: 20230421
  11. CYCLOPHOSPHAMIDE [Suspect]
     Active Substance: CYCLOPHOSPHAMIDE
     Dosage: UNK(AS A PART OF SIXTH LINE TREATMENT)
     Route: 065
     Dates: start: 20210107, end: 20210315
  12. CYCLOPHOSPHAMIDE [Suspect]
     Active Substance: CYCLOPHOSPHAMIDE
     Dosage: UNK(AS A PART OF FIRST LINE TREATMENT)
     Route: 065
     Dates: start: 20170612, end: 20171001
  13. CARFILZOMIB [Suspect]
     Active Substance: CARFILZOMIB
     Indication: Plasma cell myeloma refractory
     Dosage: UNK (SECOND LINE TREATMENT)
     Route: 065
     Dates: start: 20211222, end: 20220601
  14. CARFILZOMIB [Suspect]
     Active Substance: CARFILZOMIB
     Dosage: UNK(AS A PART OF SIXTH LINE TREATMENT)
     Route: 065
     Dates: start: 20210107, end: 20210315
  15. CARFILZOMIB [Suspect]
     Active Substance: CARFILZOMIB
     Dosage: UNK(MOST RECENT LINE TREATMENT)
     Route: 065
     Dates: start: 20220614, end: 20230421
  16. CISPLATIN [Suspect]
     Active Substance: CISPLATIN
     Indication: Plasma cell myeloma refractory
     Dosage: UNK (THIRD LINE TREATMENT, AS PART OF VDT-PACE)
     Route: 065
     Dates: start: 20230324
  17. DARATUMUMAB [Suspect]
     Active Substance: DARATUMUMAB
     Indication: Plasma cell myeloma refractory
     Dosage: UNK (FOURTH LINE TREATMENT)
     Route: 065
     Dates: start: 20230301, end: 20230330
  18. DARATUMUMAB [Suspect]
     Active Substance: DARATUMUMAB
     Dosage: UNK (FIFTH LINE TREATMENT)
     Route: 065
     Dates: start: 20230411, end: 20230425
  19. DEXAMETHASONE [Suspect]
     Active Substance: DEXAMETHASONE
     Indication: Plasma cell myeloma refractory
     Dosage: UNK (FIRST LINE TREATMENT)
     Route: 065
     Dates: start: 20190901, end: 20200115
  20. DEXAMETHASONE [Suspect]
     Active Substance: DEXAMETHASONE
     Dosage: UNK (SECOND LINE TREATMENT)
     Route: 065
     Dates: start: 20211222, end: 20220601
  21. DEXAMETHASONE [Suspect]
     Active Substance: DEXAMETHASONE
     Dosage: UNK (THIRD LINE TREATMENT)
     Route: 065
     Dates: start: 20220721, end: 20230201
  22. DEXAMETHASONE [Suspect]
     Active Substance: DEXAMETHASONE
     Dosage: UNK (FOURTH LINE TREATMENT)
     Route: 065
     Dates: start: 20230301, end: 20230330
  23. DEXAMETHASONE [Suspect]
     Active Substance: DEXAMETHASONE
     Dosage: UNK (FIFTH LINE TREATMENT)
     Route: 065
     Dates: start: 20230411, end: 20230425
  24. ELOTUZUMAB [Suspect]
     Active Substance: ELOTUZUMAB
     Indication: Plasma cell myeloma refractory
     Dosage: UNK (THIRD LINE TREATMENT)
     Route: 065
     Dates: start: 20220721, end: 20230201
  25. ELOTUZUMAB [Suspect]
     Active Substance: ELOTUZUMAB
     Dosage: UNK(AS A PART OF THIRD LINE TREATMENT)
     Route: 065
     Dates: start: 20181013, end: 20191024
  26. ETOPOSIDE [Suspect]
     Active Substance: ETOPOSIDE
     Indication: Plasma cell myeloma refractory
     Dosage: UNK
     Route: 065
     Dates: start: 20230324
  27. ISATUXIMAB [Suspect]
     Active Substance: ISATUXIMAB
     Indication: Plasma cell myeloma refractory
     Dosage: UNK (SECOND LINE TREATMENT)
     Route: 065
     Dates: start: 20211222, end: 20220601
  28. IXAZOMIB [Suspect]
     Active Substance: IXAZOMIB
     Indication: Plasma cell myeloma refractory
     Dosage: UNK(AS A PART OF SECOND LINE TREATMENT)
     Route: 065
     Dates: start: 20180301
  29. MELPHALAN [Suspect]
     Active Substance: MELPHALAN
     Indication: Plasma cell myeloma refractory
     Dosage: UNK (FIRST LINE TREATMENT)
     Route: 065
     Dates: start: 20190901, end: 20200115
  30. POMALIDOMIDE [Suspect]
     Active Substance: POMALIDOMIDE
     Indication: Plasma cell myeloma refractory
     Dosage: UNK (THIRD LINE TREATMENT)
     Route: 065
     Dates: start: 20220721, end: 20230201
  31. POMALIDOMIDE [Suspect]
     Active Substance: POMALIDOMIDE
     Dosage: UNK(AS A PART OF THIRD LINE TREATMENT)
     Route: 065
     Dates: start: 20181013, end: 20191024
  32. THALIDOMIDE [Suspect]
     Active Substance: THALIDOMIDE
     Indication: Plasma cell myeloma refractory
     Dosage: UNK (1: FIRST LINE TREATMENT)
     Route: 065
     Dates: start: 202112
  33. THALIDOMIDE [Suspect]
     Active Substance: THALIDOMIDE
     Dosage: UNK (REGIMEN:2: FIRST LINE TREATMENT, THIRD LINE TREATMENT, PART OFVDT-PACE)
     Route: 065
     Dates: start: 20230324

REACTIONS (1)
  - Plasma cell myeloma [Unknown]
